FAERS Safety Report 6995910-5 (Version None)
Quarter: 2010Q3

REPORT INFORMATION
  Report Type: 
  Country: None (occurrence: None)
  Receive Date: 20100918
  Receipt Date: 20081121
  Transmission Date: 20110219
  Serious: No
  Sender: FDA-Public Use
  Company Number: US-WYE-H06950608

PATIENT
  Sex: Female

DRUGS (4)
  1. VENLAFAXINE HYDROCHLORIDE [Suspect]
     Indication: DEPRESSION
     Route: 048
     Dates: start: 20020101, end: 20081111
  2. ESTROGEN NOS [Concomitant]
  3. PROGESTIN INJ [Concomitant]
  4. TESTOSTERONE [Concomitant]

REACTIONS (12)
  - ABNORMAL DREAMS [None]
  - AGITATION [None]
  - ANXIETY [None]
  - DISINHIBITION [None]
  - DRUG WITHDRAWAL SYNDROME [None]
  - EMOTIONAL DISORDER [None]
  - FATIGUE [None]
  - FEELING ABNORMAL [None]
  - LOSS OF LIBIDO [None]
  - NIGHTMARE [None]
  - PARAESTHESIA [None]
  - TACHYPHRENIA [None]
